FAERS Safety Report 6043330-2 (Version None)
Quarter: 2009Q1

REPORT INFORMATION
  Report Type: 
  Country: None (occurrence: None)
  Receive Date: 20090115
  Receipt Date: 20090107
  Transmission Date: 20090719
  Serious: No
  Sender: FDA-Public Use
  Company Number: 20096067

PATIENT
  Sex: Female

DRUGS (2)
  1. LIORESAL [Suspect]
     Indication: MUSCLE SPASTICITY
     Dosage: MCG, DAILY, INTRATHECAL
     Route: 037
  2. EXCLUDE TREATMENT OF EVENT) [Concomitant]

REACTIONS (4)
  - ATHETOSIS [None]
  - CATHETER RELATED COMPLICATION [None]
  - CLONUS [None]
  - HYPERTONIA [None]
